FAERS Safety Report 11202069 (Version 2)
Quarter: 2015Q2

REPORT INFORMATION
  Report Type: Report from Study
  Country: US (occurrence: None)
  Receive Date: 20150617
  Receipt Date: 20150625
  Transmission Date: 20150821
  Serious: Yes (Hospitalization)
  Sender: FDA-Public Use
  Company Number: KAD201506-001693

PATIENT
  Age: 68 Year
  Sex: Male
  Weight: 87.99 kg

DRUGS (7)
  1. LOSARTAN (LOSARTAN) [Concomitant]
     Active Substance: LOSARTAN
  2. QUETIAPINE (QUETIAPINE) [Concomitant]
     Active Substance: QUETIAPINE
  3. ZANTAC [Concomitant]
     Active Substance: RANITIDINE HYDROCHLORIDE
  4. RIBAVIRIN (RIBAVIRIN) [Suspect]
     Active Substance: RIBAVIRIN
     Indication: CHRONIC HEPATITIS C
     Route: 048
     Dates: start: 20150528, end: 20150605
  5. METOPROLOL (METOPROLOL) [Concomitant]
     Active Substance: METOPROLOL
  6. VIEKIRA PAK [Suspect]
     Active Substance: DASABUVIR\OMBITASVIR\PARITAPREVIR\RITONAVIR
     Indication: CHRONIC HEPATITIS C
     Dosage: TABLET, 12.5-75-50-250 MG TABLET PACK
     Route: 048
     Dates: start: 20150528, end: 20150605
  7. METHADONE [Concomitant]
     Active Substance: METHADONE HYDROCHLORIDE

REACTIONS (9)
  - Jaundice [None]
  - Diarrhoea [None]
  - Ocular icterus [None]
  - Blood creatinine increased [None]
  - Bacterial test [None]
  - Red blood cells urine [None]
  - Haemoglobin decreased [None]
  - Constipation [None]
  - Blood bilirubin increased [None]

NARRATIVE: CASE EVENT DATE: 201506
